FAERS Safety Report 12780446 (Version 1)
Quarter: 2016Q3

REPORT INFORMATION
  Report Type: Spontaneous
  Country: GB (occurrence: GB)
  Receive Date: 20160926
  Receipt Date: 20160926
  Transmission Date: 20161109
  Serious: Yes (Other)
  Sender: FDA-Public Use
  Company Number: GB-PFIZER INC-2016441922

PATIENT
  Age: 80 Year
  Sex: Male
  Weight: 82 kg

DRUGS (13)
  1. IBUPROFEN. [Suspect]
     Active Substance: IBUPROFEN
     Dosage: UNK
     Dates: start: 20160910
  2. LEVOTHYROXINE. [Concomitant]
     Active Substance: LEVOTHYROXINE
     Dosage: 1 DF, 1X/DAY (IN MORNING)
     Dates: start: 20160410
  3. LOSARTAN. [Concomitant]
     Active Substance: LOSARTAN
     Dosage: 1 DF, 1X/DAY
     Dates: start: 20160330, end: 20160628
  4. GAVISCON ADVANCE [Concomitant]
     Active Substance: POTASSIUM BICARBONATE\SODIUM ALGINATE
     Dosage: 1 DF, 1X/DAY
     Dates: start: 20160330
  5. VITAMIN B [Concomitant]
     Active Substance: VITAMIN B
     Dosage: 1 DF, 1X/DAY
     Dates: start: 20160410
  6. AMLODIPINE [Concomitant]
     Active Substance: AMLODIPINE BESYLATE
     Dosage: 1 DF, 1X/DAY
     Dates: start: 20160628, end: 20160628
  7. PARACETAMOL [Concomitant]
     Active Substance: ACETAMINOPHEN
     Dosage: 2 DF, 4X/DAY
     Dates: start: 20160330
  8. PIROXICAM. [Concomitant]
     Active Substance: PIROXICAM
     Dosage: APPLY AS DIRECTED.
     Dates: start: 20160330
  9. VENTOLIN [Concomitant]
     Active Substance: ALBUTEROL SULFATE
     Dosage: 1 DF, AS NEEDED
     Route: 055
     Dates: start: 20160620, end: 20160705
  10. ALLOPURINOL. [Concomitant]
     Active Substance: ALLOPURINOL
     Dosage: 1 DF, 1X/DAY
     Dates: start: 20160330
  11. ASPIRIN /00002701/ [Concomitant]
     Active Substance: ASPIRIN
     Dosage: 1 DF, 1X/DAY
     Dates: start: 20160330
  12. BECONASE AQ [Concomitant]
     Active Substance: BECLOMETHASONE DIPROPIONATE MONOHYDRATE
     Dosage: 2 DF, 2X/DAY (PUFFS)
     Dates: start: 20160620, end: 20160718
  13. LACTULOSE. [Concomitant]
     Active Substance: LACTULOSE
     Dosage: 10 ML, 3X/DAY
     Dates: start: 20160330

REACTIONS (2)
  - Lip swelling [Unknown]
  - Angioedema [Recovering/Resolving]

NARRATIVE: CASE EVENT DATE: 201609
